FAERS Safety Report 11746830 (Version 3)
Quarter: 2016Q1

REPORT INFORMATION
  Report Type: Spontaneous
  Country: US (occurrence: US)
  Receive Date: 20151117
  Receipt Date: 20160204
  Transmission Date: 20160525
  Serious: Yes (Hospitalization, Other)
  Sender: FDA-Public Use
  Company Number: US-PFIZER INC-2015378229

PATIENT
  Age: 19 Year
  Sex: Male
  Weight: 43 kg

DRUGS (6)
  1. GABAPENTIN. [Suspect]
     Active Substance: GABAPENTIN
     Dosage: 400 MG, 4X/DAY
     Route: 048
     Dates: end: 201507
  2. HUMALOG [Concomitant]
     Active Substance: INSULIN LISPRO
     Dosage: 6 IU, DAILY
     Dates: start: 200911
  3. LYRICA [Concomitant]
     Active Substance: PREGABALIN
     Indication: NEUROPATHY PERIPHERAL
     Dosage: 50 MG, 3X/DAY
     Dates: start: 201507
  4. LEVEMIR [Concomitant]
     Active Substance: INSULIN DETEMIR
     Dosage: 16 IU, UNK
     Dates: start: 200911
  5. GABAPENTIN. [Suspect]
     Active Substance: GABAPENTIN
     Indication: NEUROPATHY PERIPHERAL
     Dosage: UNK, 3X/DAY
     Dates: start: 201502, end: 201507
  6. GABAPENTIN. [Suspect]
     Active Substance: GABAPENTIN
     Dosage: 20 MG, UNK
     Dates: start: 201506

REACTIONS (6)
  - Gastrointestinal disorder [Not Recovered/Not Resolved]
  - Neuropathy peripheral [Unknown]
  - Disease progression [Unknown]
  - Weight decreased [Recovered/Resolved]
  - Bedridden [Not Recovered/Not Resolved]
  - Drug ineffective [Unknown]

NARRATIVE: CASE EVENT DATE: 2015
